FAERS Safety Report 4731917-6 (Version None)
Quarter: 2005Q3

REPORT INFORMATION
  Report Type: 
  Country: None (occurrence: None)
  Receive Date: 20050725
  Receipt Date: 20041027
  Transmission Date: 20060218
  Serious: Yes (Other)
  Sender: FDA-Public Use
  Company Number: WAES 0410USA04182

PATIENT
  Age: 65 Year

DRUGS (3)
  1. VIOXX [Suspect]
     Dosage: 25 MG, DAILY; PO
     Route: 048
     Dates: start: 20040101, end: 20040401
  2. COZAAR [Concomitant]
  3. NORVASC [Concomitant]

REACTIONS (1)
  - RENAL FAILURE [None]
